FAERS Safety Report 7483387-5 (Version None)
Quarter: 2011Q2

REPORT INFORMATION
  Report Type: 
  Country: None (occurrence: None)
  Receive Date: 20110517
  Receipt Date: 20110328
  Transmission Date: 20111010
  Serious: Yes (Other)
  Sender: FDA-Public Use
  Company Number: US-BAYER-201033933NA

PATIENT
  Age: 49 Year
  Sex: Female
  Weight: 89 kg

DRUGS (6)
  1. LIPITOR [Concomitant]
  2. TENORMIN [Concomitant]
     Dosage: 50 MG, BID
  3. LOTREL [Concomitant]
     Dosage: UNK UNK, QD
  4. LOPRESSOR [Concomitant]
  5. YASMIN [Suspect]
     Indication: PREMENSTRUAL SYNDROME
     Dosage: UNK
     Dates: start: 20020101, end: 20030101
  6. YASMIN [Suspect]
     Dosage: UNK
     Dates: start: 20050101, end: 20060101

REACTIONS (3)
  - INJURY [None]
  - CEREBROVASCULAR ACCIDENT [None]
  - THROMBOSIS [None]
